FAERS Safety Report 18157568 (Version 6)
Quarter: 2025Q4

REPORT INFORMATION
  Report Type: Spontaneous
  Country: US (occurrence: US)
  Receive Date: 20200817
  Receipt Date: 20251013
  Transmission Date: 20260117
  Serious: No
  Sender: AMGEN
  Company Number: US-PFIZER INC-2020309496

PATIENT
  Age: 65 Year
  Sex: Female

DRUGS (1)
  1. ENBREL [Suspect]
     Active Substance: ETANERCEPT
     Indication: Product used for unknown indication
     Dosage: (WAS MORE THAN 10 YEARS AGO, BEFORE TAKING XELJANZ XR, NO LONGER HAS ENBREL)
     Route: 065

REACTIONS (2)
  - Drug hypersensitivity [Unknown]
  - Rash [Unknown]
